FAERS Safety Report 7389700-1 (Version None)
Quarter: 2011Q2

REPORT INFORMATION
  Report Type: 
  Country: None (occurrence: None)
  Receive Date: 20110401
  Receipt Date: 20110325
  Transmission Date: 20111010
  Serious: Yes (Hospitalization)
  Sender: FDA-Public Use
  Company Number: JP-MERCK-1012USA02169

PATIENT
  Age: 64 Year
  Sex: Female

DRUGS (2)
  1. ONEALFA [Concomitant]
     Dosage: DOSAGE IS UNCERTAIN DURING A DAY.
     Route: 048
  2. FOSAMAX [Suspect]
     Route: 048
     Dates: start: 20090101

REACTIONS (11)
  - VITH NERVE PARALYSIS [None]
  - ACNE [None]
  - ABNORMAL SENSATION IN EYE [None]
  - VISION BLURRED [None]
  - DECREASED APPETITE [None]
  - VOMITING [None]
  - HEADACHE [None]
  - LISTLESS [None]
  - DIARRHOEA [None]
  - WEIGHT DECREASED [None]
  - MALAISE [None]
